FAERS Safety Report 9466613 (Version 1)
Quarter: 2013Q3

REPORT INFORMATION
  Report Type: Spontaneous
  Country: DK (occurrence: DK)
  Receive Date: 20130820
  Receipt Date: 20130820
  Transmission Date: 20140515
  Serious: Yes (Death, Other)
  Sender: FDA-Public Use
  Company Number: PHHY2013DK089675

PATIENT
  Age: 80 Year
  Sex: Female

DRUGS (6)
  1. PREDNISONE [Suspect]
     Indication: CHRONIC LYMPHOCYTIC LEUKAEMIA
     Dosage: UNK
  2. PREDNISONE [Suspect]
     Indication: SKIN LESION
     Dosage: UNK
     Route: 048
  3. CHLORAMBUCIL [Suspect]
  4. ALEMTUZUMAB [Concomitant]
  5. POTASSIUM PERMANGANATE [Concomitant]
  6. CORTICOSTEROIDS [Concomitant]
     Route: 061

REACTIONS (5)
  - Death [Fatal]
  - Respiratory failure [Fatal]
  - General physical health deterioration [Fatal]
  - Skin disorder [Unknown]
  - Depressive symptom [Unknown]
